FAERS Safety Report 13010047 (Version 4)
Quarter: 2017Q1

REPORT INFORMATION
  Report Type: Spontaneous
  Country: FR (occurrence: FR)
  Receive Date: 20161208
  Receipt Date: 20170125
  Transmission Date: 20170428
  Serious: Yes (Death, Hospitalization)
  Sender: FDA-Public Use
  Company Number: FR-INCYTE CORPORATION-2016IN007847

PATIENT
  Age: 69 Year
  Sex: Male

DRUGS (21)
  1. ZELITREX [Concomitant]
     Active Substance: VALACYCLOVIR HYDROCHLORIDE
     Indication: PRODUCT USED FOR UNKNOWN INDICATION
     Dosage: 1 DF, QD
     Route: 048
     Dates: end: 20161114
  2. DIFFU-K [Concomitant]
     Active Substance: POTASSIUM CHLORIDE
     Indication: PRODUCT USED FOR UNKNOWN INDICATION
     Dosage: TABLET; UNKNOWN
     Route: 065
  3. STAGID [Concomitant]
     Active Substance: METFORMIN PAMOATE
     Dosage: 700 MG, TID
  4. DIFFU-K [Concomitant]
     Active Substance: POTASSIUM CHLORIDE
     Dosage: 1 DF, TID
  5. LASILIX [Concomitant]
     Active Substance: FUROSEMIDE
     Dosage: 120 MG, QD (80 MG IN THE MORNING AND 40 MG AT NOON)
     Route: 065
  6. ALDACTONE [Concomitant]
     Active Substance: SPIRONOLACTONE
     Indication: PRODUCT USED FOR UNKNOWN INDICATION
     Dosage: TABLET, 50 MG, UNKNOWN
     Route: 065
  7. LASILIX [Concomitant]
     Active Substance: FUROSEMIDE
     Dosage: 40 MG, BID
  8. STAGID [Concomitant]
     Active Substance: METFORMIN PAMOATE
     Indication: PRODUCT USED FOR UNKNOWN INDICATION
     Dosage: TABLET; UNKNOWN
     Route: 065
  9. ZELITREX [Concomitant]
     Active Substance: VALACYCLOVIR HYDROCHLORIDE
     Dosage: 500 MG, BID
     Route: 065
  10. ALDACTONE [Concomitant]
     Active Substance: SPIRONOLACTONE
     Dosage: 1 DF, QD (MORNING)
  11. ALDACTONE [Concomitant]
     Active Substance: SPIRONOLACTONE
     Dosage: 1 DF, QD (MORNING)
  12. DIFFU-K [Concomitant]
     Active Substance: POTASSIUM CHLORIDE
     Dosage: 1 DF, TID
  13. DIFFU-K [Concomitant]
     Active Substance: POTASSIUM CHLORIDE
     Dosage: 1 DF, TID
  14. LASILIX [Concomitant]
     Active Substance: FUROSEMIDE
     Indication: PRODUCT USED FOR UNKNOWN INDICATION
     Dosage: TABLET; UNKNOWN
     Route: 065
  15. LASILIX [Concomitant]
     Active Substance: FUROSEMIDE
     Dosage: 40 MG, BID
  16. LASILIX [Concomitant]
     Active Substance: FUROSEMIDE
     Dosage: 120 MG, QD (80 MG IN THE MORNING AND 40 MG AT NOON)
     Route: 065
  17. STAGID [Concomitant]
     Active Substance: METFORMIN PAMOATE
     Dosage: 700 MG, TID
  18. JAKAVI [Suspect]
     Active Substance: RUXOLITINIB
     Indication: MYELOFIBROSIS
     Dosage: 5 MG, BID
     Route: 048
     Dates: end: 20161114
  19. ALDACTONE [Concomitant]
     Active Substance: SPIRONOLACTONE
     Dosage: 1 DF, QD (MORNING)
  20. LASILIX [Concomitant]
     Active Substance: FUROSEMIDE
     Dosage: 40 MG, BID
  21. STAGID [Concomitant]
     Active Substance: METFORMIN PAMOATE
     Dosage: 700 MG, TID

REACTIONS (1)
  - Interstitial lung disease [Fatal]

NARRATIVE: CASE EVENT DATE: 20161108
